FAERS Safety Report 17430552 (Version 1)
Quarter: 2020Q1

REPORT INFORMATION
  Report Type: Spontaneous
  Country: US (occurrence: US)
  Receive Date: 20200203
  Receipt Date: 20200203
  Transmission Date: 20200409
  Serious: Yes (Hospitalization)
  Sender: FDA-Public Use
  Company Number: None

PATIENT
  Age: 67 Year
  Sex: Male
  Weight: 34.2 kg

DRUGS (9)
  1. DAPSONE. [Concomitant]
     Active Substance: DAPSONE
  2. IDELALISIB VS PLACEBO 100MG [Suspect]
     Active Substance: IDELALISIB
     Indication: BONE MARROW TRANSPLANT
     Route: 048
     Dates: start: 20191223, end: 20200201
  3. MAGNESIUM [Concomitant]
     Active Substance: MAGNESIUM
  4. VALTREX [Concomitant]
     Active Substance: VALACYCLOVIR HYDROCHLORIDE
     Route: 048
  5. PROZAC [Concomitant]
     Active Substance: FLUOXETINE HYDROCHLORIDE
     Route: 048
  6. TACROLIMUS. [Concomitant]
     Active Substance: TACROLIMUS
     Route: 048
  7. TAR SHAMPOO [Concomitant]
  8. TRIAMCINOLONE CREAM PRN [Concomitant]
  9. TACROLIMUS. [Concomitant]
     Active Substance: TACROLIMUS
     Dosage: ?          OTHER FREQUENCY:IN PM;?
     Route: 048

REACTIONS (5)
  - Syncope [None]
  - Vomiting [None]
  - Dehydration [None]
  - Frequent bowel movements [None]
  - Nausea [None]

NARRATIVE: CASE EVENT DATE: 20200201
